FAERS Safety Report 5320749-6 (Version None)
Quarter: 2007Q2

REPORT INFORMATION
  Report Type: 
  Country: None (occurrence: None)
  Receive Date: 20070509
  Receipt Date: 20070425
  Transmission Date: 20071010
  Serious: Yes (Hospitalization, Other)
  Sender: FDA-Public Use
  Company Number: CZ-SHR-CZ-2007-014701

PATIENT
  Age: 66 Year
  Sex: Female
  Weight: 60 kg

DRUGS (4)
  1. FLUDARABINE PHOSPHATE [Suspect]
     Dosage: 41 MG/D, CYCLES X 3D Q 28D
     Route: 042
     Dates: start: 20060221, end: 20060323
  2. CYCLOPHOSPHAMIDE [Suspect]
     Dosage: 410 MG/D, CYCLES X 3D Q 28D
     Route: 042
     Dates: start: 20060221, end: 20060323
  3. DIGOXIN [Concomitant]
     Dosage: .125 MG/D, UNK
     Dates: start: 20040101
  4. LETROX [Concomitant]
     Dosage: 200 A?G/DAY, UNK
     Dates: start: 19890101

REACTIONS (10)
  - ANAEMIA [None]
  - ARRHYTHMIA SUPRAVENTRICULAR [None]
  - CARDIAC FAILURE [None]
  - CREATININE RENAL CLEARANCE DECREASED [None]
  - DISSEMINATED INTRAVASCULAR COAGULATION [None]
  - HYPOTENSION [None]
  - NEUTROPENIA [None]
  - PYREXIA [None]
  - SEPSIS [None]
  - THROMBOCYTOPENIA [None]
